FAERS Safety Report 16118482 (Version 5)
Quarter: 2020Q3

REPORT INFORMATION
  Report Type: Spontaneous
  Country: ES (occurrence: ES)
  Receive Date: 20190326
  Receipt Date: 20190620
  Transmission Date: 20201104
  Serious: Yes (Hospitalization)
  Sender: FDA-Public Use
  Company Number: IND-ES-009507513-1903ESP005764

PATIENT
  Age: 46 Year
  Sex: Female

DRUGS (21)
  1. ETORICOXIB. [Suspect]
     Active Substance: ETORICOXIB
     Indication: MIGRAINE
     Dosage: UNK
     Route: 065
  2. CANDESARTAN CILEXETIL. [Suspect]
     Active Substance: CANDESARTAN CILEXETIL
     Indication: MIGRAINE
     Dosage: UNK
     Route: 065
  3. ELETRIPTAN. [Suspect]
     Active Substance: ELETRIPTAN
     Indication: MIGRAINE
     Dosage: UNK
     Route: 065
  4. AMITRIPTYLINE HYDROCHLORIDE. [Suspect]
     Active Substance: AMITRIPTYLINE HYDROCHLORIDE
     Indication: MIGRAINE
     Dosage: UNK
     Route: 048
  5. PREGABALIN. [Suspect]
     Active Substance: PREGABALIN
     Indication: MIGRAINE
     Dosage: DOSAGE FORM: UNSPECIFIED
     Route: 065
  6. LAMOTRIGINE. [Suspect]
     Active Substance: LAMOTRIGINE
     Indication: MIGRAINE
     Dosage: UNK
     Route: 048
  7. LEVOMEPROMAZINE [Suspect]
     Active Substance: LEVOMEPROMAZINE
     Dosage: UNK
  8. VALPROATE SODIUM. [Suspect]
     Active Substance: VALPROATE SODIUM
     Indication: MIGRAINE
     Dosage: UNK
     Route: 048
  9. ESCITALOPRAM [Suspect]
     Active Substance: ESCITALOPRAM OXALATE
     Indication: MIGRAINE
     Dosage: UNK
     Route: 048
  10. AMITRIPTYLINE HYDROCHLORIDE. [Suspect]
     Active Substance: AMITRIPTYLINE HYDROCHLORIDE
     Dosage: UNK
  11. BOTOX [Suspect]
     Active Substance: ONABOTULINUMTOXINA
     Indication: MIGRAINE
     Dosage: 300 U, (PER SESSION)
     Route: 030
  12. BOTOX [Suspect]
     Active Substance: ONABOTULINUMTOXINA
     Dosage: UNK, SINGLE
     Route: 030
  13. DILTIAZEM. [Suspect]
     Active Substance: DILTIAZEM
     Indication: MIGRAINE
     Dosage: UNK
     Route: 048
  14. TOPIRAMATE. [Suspect]
     Active Substance: TOPIRAMATE
     Indication: MIGRAINE
     Dosage: UNK
     Route: 048
  15. FLUNARIZINE [Suspect]
     Active Substance: FLUNARIZINE
     Indication: MIGRAINE
     Dosage: UNK
     Route: 048
  16. PREGABALIN. [Suspect]
     Active Substance: PREGABALIN
     Dosage: UNK
     Route: 065
  17. LEVOTHROID [Concomitant]
     Active Substance: LEVOTHYROXINE SODIUM
     Indication: HYPOTHYROIDISM
     Dosage: UNK
     Route: 065
  18. NADOLOL. [Suspect]
     Active Substance: NADOLOL
     Indication: MIGRAINE
     Dosage: UNK
     Route: 048
  19. ZONISAMIDE. [Suspect]
     Active Substance: ZONISAMIDE
     Indication: MIGRAINE
     Dosage: UNK
     Route: 048
  20. TOPIRAMATE. [Suspect]
     Active Substance: TOPIRAMATE
     Dosage: DOSAGE FORM: UNSPECIFIED
     Route: 048
  21. LEVOMEPROMAZINE [Suspect]
     Active Substance: LEVOMEPROMAZINE
     Indication: MIGRAINE
     Dosage: UNK
     Route: 048

REACTIONS (7)
  - Therapeutic product effect incomplete [Unknown]
  - Weight decreased [Unknown]
  - Somnolence [Unknown]
  - Withdrawal syndrome [Unknown]
  - Drug eruption [Unknown]
  - Product use in unapproved indication [Unknown]
  - Drug ineffective [Unknown]
